FAERS Safety Report 23089670 (Version 2)
Quarter: 2023Q4

REPORT INFORMATION
  Report Type: Report from Study
  Country: US (occurrence: US)
  Receive Date: 20231020
  Receipt Date: 20231121
  Transmission Date: 20240109
  Serious: Yes (Other)
  Sender: FDA-Public Use
  Company Number: US-ABBVIE-5458103

PATIENT
  Age: 49 Year
  Sex: Male
  Weight: 68 kg

DRUGS (14)
  1. VENCLEXTA [Suspect]
     Active Substance: VENETOCLAX
     Indication: Plasma cell myeloma
     Dosage: TAKE 3 TABLET(S) BY MOUTH (300MG) EVERY DAY, STRENGTH: 100 MG
     Route: 048
  2. VENCLEXTA [Suspect]
     Active Substance: VENETOCLAX
     Indication: Plasma cell myeloma
     Dosage: 200MG DAILY, STRENGTH: 100 MG
     Route: 048
  3. VENCLEXTA [Suspect]
     Active Substance: VENETOCLAX
     Indication: Plasma cell myeloma
     Dosage: TAKE 3 TABLET(S) BY MOUTH (300MG) EVERY DAY, STRENGTH: 100 MG
     Route: 048
  4. VENCLEXTA [Suspect]
     Active Substance: VENETOCLAX
     Indication: Plasma cell myeloma
     Dosage: TAKE 4 TABLET(S) BY MOUTH DAILY, STRENGTH: 100 MG
     Route: 048
     Dates: start: 201912, end: 202006
  5. VENCLEXTA [Suspect]
     Active Substance: VENETOCLAX
     Indication: Plasma cell myeloma
     Dosage: 100 MG (1 TABLET) PO DAILY DURING PAXLOVID AND FOR 3 DAYS AFTER COMPLETION, AND TO? RESUME HIS CU...
     Route: 048
  6. DARATUMUMAB [Concomitant]
     Active Substance: DARATUMUMAB
     Indication: Plasma cell myeloma
     Dosage: ONGOING: NO
  7. BORTEZOMIB [Concomitant]
     Active Substance: BORTEZOMIB
     Indication: Product used for unknown indication
  8. CYCLOPHOSPHAMIDE [Concomitant]
     Active Substance: CYCLOPHOSPHAMIDE
     Indication: Product used for unknown indication
     Dosage: 1000 MCG DAILY
  9. ACYCLOVIR [Concomitant]
     Active Substance: ACYCLOVIR
     Indication: Antiviral prophylaxis
     Dosage: 400 MG TWICE DAILY FOR SHINGLES PROPHYLAXIS
  10. TIZANIDINE [Concomitant]
     Active Substance: TIZANIDINE
     Indication: Back pain
  11. PAXLOVID [Concomitant]
     Active Substance: NIRMATRELVIR\RITONAVIR
     Indication: Product used for unknown indication
  12. TAMSULOSIN [Concomitant]
     Active Substance: TAMSULOSIN
     Indication: Product used for unknown indication
  13. SILDENAFIL [Concomitant]
     Active Substance: SILDENAFIL
     Indication: Product used for unknown indication
  14. CYANOCOBALAMIN [Concomitant]
     Active Substance: CYANOCOBALAMIN
     Indication: Vitamin B12 deficiency
     Dosage: 1000  G

REACTIONS (14)
  - Plasma cell myeloma [Unknown]
  - Back pain [Recovered/Resolved]
  - Off label use [Recovered/Resolved]
  - Fatigue [Unknown]
  - Proteinuria [Unknown]
  - Bone lesion [Unknown]
  - Nausea [Unknown]
  - Renal failure [Recovered/Resolved]
  - Blood creatinine abnormal [Unknown]
  - Neutropenia [Recovered/Resolved]
  - Diarrhoea [Unknown]
  - Loss of personal independence in daily activities [Unknown]
  - Vitamin B12 deficiency [Unknown]
  - Anaemia [Recovered/Resolved]

NARRATIVE: CASE EVENT DATE: 20191201
